FAERS Safety Report 4428374-6 (Version None)
Quarter: 2004Q3

REPORT INFORMATION
  Report Type: 
  Country: None (occurrence: None)
  Receive Date: 20040813
  Receipt Date: 20040806
  Transmission Date: 20050211
  Serious: Yes (Death)
  Sender: FDA-Public Use
  Company Number: 2004227152DE

PATIENT
  Age: 56 Year
  Sex: Male
  Weight: 54 kg

DRUGS (1)
  1. FRAGMIN [Suspect]
     Indication: THROMBOSIS PROPHYLAXIS
     Dosage: 5000 U, QD, SUBCUTANEOUS
     Route: 058
     Dates: start: 20040310

REACTIONS (6)
  - CACHEXIA [None]
  - DEEP VEIN THROMBOSIS [None]
  - DRUG INEFFECTIVE [None]
  - MECHANICAL ILEUS [None]
  - PULMONARY EMBOLISM [None]
  - SUDDEN CARDIAC DEATH [None]
